FAERS Safety Report 6522029-X (Version None)
Quarter: 2009Q4

REPORT INFORMATION
  Report Type: 
  Country: None (occurrence: None)
  Receive Date: 20091230
  Receipt Date: 20091217
  Transmission Date: 20100525
  Serious: Yes (Other)
  Sender: FDA-Public Use
  Company Number: DE-PFIZER INC-2009311353

PATIENT
  Age: 83 Year
  Sex: Male

DRUGS (1)
  1. TOVIAZ [Suspect]
     Dosage: UNK
     Route: 048
     Dates: start: 20090101

REACTIONS (1)
  - BLOOD PRESSURE INCREASED [None]
